FAERS Safety Report 7450715-6 (Version None)
Quarter: 2011Q2

REPORT INFORMATION
  Report Type: 
  Country: None (occurrence: None)
  Receive Date: 20110502
  Receipt Date: 20110420
  Transmission Date: 20111010
  Serious: Yes (Hospitalization, Other)
  Sender: FDA-Public Use
  Company Number: MX-SANOFI-AVENTIS-2011SA024797

PATIENT
  Age: 76 Year
  Sex: Female

DRUGS (2)
  1. GLIBENCLAMIDE/METFORMIN HYDROCHLORIDE [Concomitant]
     Route: 048
  2. INSULIN GLARGINE [Suspect]
     Route: 058
     Dates: start: 20101001, end: 20110319

REACTIONS (3)
  - DIABETIC COMPLICATION [None]
  - LEG AMPUTATION [None]
  - AMAUROSIS [None]
